FAERS Safety Report 5753777-7 (Version None)
Quarter: 2008Q2

REPORT INFORMATION
  Report Type: 
  Country: None (occurrence: None)
  Receive Date: 20080527
  Receipt Date: 20080521
  Transmission Date: 20081010
  Serious: Yes (Death, Other)
  Sender: FDA-Public Use
  Company Number: 2003-05-4976

PATIENT
  Age: 31 Year
  Sex: Female

DRUGS (3)
  1. PEG-INTRON [Suspect]
     Indication: MALIGNANT MELANOMA
     Dosage: 6 MCG/KG;QW; 3 MCG/KG;QW
     Dates: start: 20030131, end: 20030228
  2. PEG-INTRON [Suspect]
     Indication: MALIGNANT MELANOMA
     Dosage: 6 MCG/KG;QW; 3 MCG/KG;QW
     Dates: start: 20030131, end: 20030419
  3. PEG-INTRON [Suspect]
     Indication: MALIGNANT MELANOMA
     Dosage: 6 MCG/KG;QW; 3 MCG/KG;QW
     Dates: start: 20030321, end: 20030419

REACTIONS (3)
  - HYPOTHYROIDISM [None]
  - LEUKOPENIA [None]
  - THROMBOCYTOPENIA [None]
